FAERS Safety Report 19374827 (Version 2)
Quarter: 2021Q2

REPORT INFORMATION
  Report Type: Spontaneous
  Country: HR (occurrence: HR)
  Receive Date: 20210604
  Receipt Date: 20210615
  Transmission Date: 20210717
  Serious: Yes (Other)
  Sender: FDA-Public Use
  Company Number: HR-PFIZER INC-2021618595

PATIENT
  Age: 67 Year
  Sex: Female

DRUGS (2)
  1. RITUXIMAB. [Suspect]
     Active Substance: RITUXIMAB
     Indication: FOLLICULAR LYMPHOMA
     Dosage: UNK UNK, CYCLIC
  2. BENDAMUSTINE [Suspect]
     Active Substance: BENDAMUSTINE
     Indication: FOLLICULAR LYMPHOMA
     Dosage: UNK UNK, CYCLIC

REACTIONS (5)
  - Neutropenia [Unknown]
  - Visual impairment [Unknown]
  - Follicular lymphoma [Unknown]
  - Neuropathic muscular atrophy [Unknown]
  - Disease recurrence [Unknown]
